FAERS Safety Report 15846481 (Version 2)
Quarter: 2019Q3

REPORT INFORMATION
  Report Type: Spontaneous
  Country: CN (occurrence: CN)
  Receive Date: 20190120
  Receipt Date: 20190712
  Transmission Date: 20191004
  Serious: Yes (Hospitalization, Other)
  Sender: FDA-Public Use
  Company Number: CN-SUN PHARMACEUTICAL INDUSTRIES LTD-2019R1-196542

PATIENT
  Age: 33 Year
  Sex: Female

DRUGS (2)
  1. METHOTREXATE. [Suspect]
     Active Substance: METHOTREXATE
     Indication: BACK PAIN
  2. METHOTREXATE. [Suspect]
     Active Substance: METHOTREXATE
     Indication: IMMUNOSUPPRESSANT DRUG THERAPY
     Dosage: 10 MILLIGRAM, DAILY
     Route: 065

REACTIONS (7)
  - Mouth ulceration [Recovering/Resolving]
  - Bacteraemia [Recovered/Resolved]
  - Ulcer haemorrhage [Unknown]
  - Mucosal ulceration [Unknown]
  - Bone marrow failure [Recovering/Resolving]
  - Toxicity to various agents [Unknown]
  - Incorrect dose administered [Unknown]
